FAERS Safety Report 5464897-9 (Version None)
Quarter: 2007Q3

REPORT INFORMATION
  Report Type: 
  Country: None (occurrence: None)
  Receive Date: 20070820
  Receipt Date: 20070511
  Transmission Date: 20080115
  Serious: No
  Sender: FDA-Public Use
  Company Number: TPA2007A01060

PATIENT
  Age: 6 Decade
  Sex: Female

DRUGS (2)
  1. ROZEREM [Suspect]
     Dosage: PER ORAL
     Route: 048
  2. EFFEXOR [Concomitant]

REACTIONS (1)
  - MUSCLE SPASMS [None]
